FAERS Safety Report 18599798 (Version 10)
Quarter: 2024Q4

REPORT INFORMATION
  Report Type: Spontaneous
  Country: US (occurrence: US)
  Receive Date: 20201210
  Receipt Date: 20241002
  Transmission Date: 20250115
  Serious: No
  Sender: PFIZER
  Company Number: US-PFIZER INC-2020483222

PATIENT
  Age: 65 Year
  Sex: Female
  Weight: 75.283 kg

DRUGS (2)
  1. IBRANCE [Suspect]
     Active Substance: PALBOCICLIB
     Indication: Breast cancer metastatic
     Dosage: ONE TABLET DAILY FOR 3 WEEKS AND THEN 1 WEEK OFF
     Route: 048
     Dates: start: 20201026
  2. IBRANCE [Suspect]
     Active Substance: PALBOCICLIB
     Indication: Neoplasm recurrence
     Dosage: TAKE 1 TABLET (100 MG TOTAL) DAILY. DAYS 1-21, THEN 7 DAYS OFF, 28 DAY CYCLE
     Route: 048
     Dates: start: 20231207

REACTIONS (2)
  - White blood cell count decreased [Unknown]
  - Product prescribing error [Unknown]
